FAERS Safety Report 8439990-9 (Version None)
Quarter: 2012Q2

REPORT INFORMATION
  Report Type: 
  Country: None (occurrence: None)
  Receive Date: 20120615
  Receipt Date: 20120611
  Transmission Date: 20120825
  Serious: Yes (Life-Threatening, Hospitalization)
  Sender: FDA-Public Use
  Company Number: US-PFIZER INC-2012141044

PATIENT

DRUGS (1)
  1. ADRIAMYCIN PFS [Suspect]
     Indication: LYMPHOPLASMACYTOID LYMPHOMA/IMMUNOCYTOMA
     Dosage: 67 MG, CYCLIC, EVERY 3 WEEKS (Q3WKS)
     Route: 042
     Dates: start: 20110907, end: 20111228

REACTIONS (4)
  - CARDIAC FAILURE CONGESTIVE [None]
  - MYOCARDIAL INFARCTION [None]
  - FLUID OVERLOAD [None]
  - ATRIAL FIBRILLATION [None]
